FAERS Safety Report 10613168 (Version 2)
Quarter: 2014Q4

REPORT INFORMATION
  Report Type: Report from Study
  Country: CO (occurrence: CO)
  Receive Date: 20141128
  Receipt Date: 20141231
  Transmission Date: 20150529
  Serious: Yes (Hospitalization, Other)
  Sender: FDA-Public Use
  Company Number: CO-ROCHE-1498185

PATIENT
  Age: 80 Year
  Sex: Female
  Weight: 52 kg

DRUGS (5)
  1. AMLODIPINE [Concomitant]
     Active Substance: AMLODIPINE BESYLATE
  2. CLOPIDOGREL [Concomitant]
     Active Substance: CLOPIDOGREL BISULFATE
  3. GEMFIBROZIL. [Concomitant]
     Active Substance: GEMFIBROZIL
  4. LOSARTAN [Concomitant]
     Active Substance: LOSARTAN
  5. LUCENTIS [Suspect]
     Active Substance: RANIBIZUMAB
     Indication: PRODUCT USED FOR UNKNOWN INDICATION
     Dosage: MOST RECENT DOSE WAS ADMINISTRED IN JAN/2014
     Route: 050
     Dates: start: 201310

REACTIONS (4)
  - Thrombosis [Recovered/Resolved with Sequelae]
  - Vertigo [Unknown]
  - Dizziness [Unknown]
  - Deafness unilateral [Unknown]

NARRATIVE: CASE EVENT DATE: 201407
